FAERS Safety Report 11390057 (Version 1)
Quarter: 2015Q3

REPORT INFORMATION
  Report Type: Report from Study
  Country: ZA (occurrence: ZA)
  Receive Date: 20150818
  Receipt Date: 20150818
  Transmission Date: 20151125
  Serious: Yes (Death, Hospitalization, Other)
  Sender: FDA-Public Use
  Company Number: ZA-AMGEN-ZAFSL2015082189

PATIENT
  Age: 64 Year
  Sex: Female

DRUGS (1)
  1. ARANESP [Suspect]
     Active Substance: DARBEPOETIN ALFA
     Indication: PRODUCT USED FOR UNKNOWN INDICATION
     Dosage: 60 UNK, QWK
     Route: 042
     Dates: start: 20110301, end: 201506

REACTIONS (6)
  - Impaired healing [Not Recovered/Not Resolved]
  - Infection [Unknown]
  - Ill-defined disorder [Unknown]
  - Diabetic foot [Not Recovered/Not Resolved]
  - Device related sepsis [Fatal]
  - Organ failure [Fatal]
